FAERS Safety Report 21444808 (Version 1)
Quarter: 2022Q4

REPORT INFORMATION
  Report Type: Spontaneous
  Country: US (occurrence: None)
  Receive Date: 20221010
  Receipt Date: 20221010
  Transmission Date: 20230113
  Serious: No
  Sender: FDA-Public Use
  Company Number: None

PATIENT
  Sex: Female

DRUGS (1)
  1. NUCALA [Suspect]
     Active Substance: MEPOLIZUMAB
     Indication: Asthma
     Dosage: OTHER FREQUENCY : EVERY 28 DAYS;?
     Route: 058
     Dates: start: 20220319

REACTIONS (4)
  - Injection site pain [None]
  - Pain in extremity [None]
  - Peripheral swelling [None]
  - Neuropathy peripheral [None]

NARRATIVE: CASE EVENT DATE: 20220801
